FAERS Safety Report 10215093 (Version 2)
Quarter: 2014Q2

REPORT INFORMATION
  Report Type: Report from Study
  Country: CA (occurrence: CA)
  Receive Date: 20140603
  Receipt Date: 20140609
  Transmission Date: 20141212
  Serious: Yes (Other)
  Sender: FDA-Public Use
  Company Number: CA-SA-2014SA067863

PATIENT
  Age: 41 Year
  Sex: Female
  Weight: 77 kg

DRUGS (8)
  1. AUBAGIO [Suspect]
     Indication: RELAPSING-REMITTING MULTIPLE SCLEROSIS
     Route: 048
     Dates: start: 20140309, end: 20140510
  2. ASACOL [Concomitant]
     Indication: COLITIS
     Route: 048
  3. ATENOLOL [Concomitant]
     Indication: MIGRAINE
     Route: 048
     Dates: start: 199312
  4. PROZAC [Concomitant]
     Indication: MIGRAINE
     Route: 048
     Dates: start: 199406
  5. PANTOLOC [Concomitant]
     Indication: GASTROINTESTINAL DISORDER
     Route: 048
  6. ASA [Concomitant]
     Indication: PROPHYLAXIS
     Route: 048
  7. PREMARIN [Concomitant]
     Indication: HORMONE THERAPY
     Dosage: DOSE-0.625
     Route: 048
  8. PROMETRIUM [Concomitant]
     Indication: HORMONE THERAPY
     Route: 048

REACTIONS (4)
  - Colitis [Recovering/Resolving]
  - Abdominal discomfort [Recovering/Resolving]
  - Diarrhoea [Recovering/Resolving]
  - Therapy cessation [Unknown]
